FAERS Safety Report 16698869 (Version 1)
Quarter: 2019Q3

REPORT INFORMATION
  Report Type: Spontaneous
  Country: US (occurrence: US)
  Receive Date: 20190813
  Receipt Date: 20190813
  Transmission Date: 20191004
  Serious: No
  Sender: FDA-Public Use
  Company Number: US-PERRIGO-18US007814

PATIENT
  Age: 78 Year
  Sex: Female
  Weight: 63.49 kg

DRUGS (2)
  1. LORATADINE. [Suspect]
     Active Substance: LORATADINE
     Indication: EYE DISORDER
     Dosage: 10 MG, SINGLE
     Route: 048
     Dates: start: 20180731, end: 20180731
  2. LORATADINE. [Suspect]
     Active Substance: LORATADINE
     Indication: NASAL DISORDER
     Dosage: 10 MG, TWICE IN A COUPLE HOURS
     Route: 048
     Dates: start: 20180801, end: 20180801

REACTIONS (2)
  - Extra dose administered [Recovered/Resolved]
  - Fatigue [Recovering/Resolving]

NARRATIVE: CASE EVENT DATE: 20180801
